FAERS Safety Report 10100765 (Version 3)
Quarter: 2014Q2

REPORT INFORMATION
  Report Type: Report from Study
  Country: NL (occurrence: NL)
  Receive Date: 20140423
  Receipt Date: 20140528
  Transmission Date: 20141212
  Serious: Yes (Hospitalization)
  Sender: FDA-Public Use
  Company Number: NL-BAXTER-2014BAX016144

PATIENT
  Age: 59 Year
  Sex: Male

DRUGS (6)
  1. KIOVIG, 100 MG/ML, OPLOSSING VOOR INFUSIE  (30 G/300 ML) [Suspect]
     Indication: POLYNEUROPATHY
     Route: 042
     Dates: start: 20140327
  2. KIOVIG, 100 MG/ML, OPLOSSING VOOR INFUSIE  (30 G/300 ML) [Suspect]
     Indication: OFF LABEL USE
     Route: 042
     Dates: start: 20140329
  3. KIOVIG, 100 MG/ML, OPLOSSING VOOR INFUSIE  (30 G/300 ML) [Suspect]
     Route: 042
     Dates: start: 20140408
  4. KIOVIG 100 MG/ML OPLOSSING VOOR INFUSIE (1 G/10 ML) [Suspect]
     Indication: POLYNEUROPATHY
     Dosage: 2-1 GRAM VIALS
     Route: 042
     Dates: start: 20140327
  5. KIOVIG 100 MG/ML OPLOSSING VOOR INFUSIE (1 G/10 ML) [Suspect]
     Indication: OFF LABEL USE
     Dosage: 2-1 GRAM VIALS
     Route: 042
     Dates: start: 20140329
  6. KIOVIG 100 MG/ML OPLOSSING VOOR INFUSIE (1 G/10 ML) [Suspect]
     Dosage: 2-1 GRAM VIALS
     Route: 042
     Dates: start: 20140408

REACTIONS (3)
  - Dyspnoea [Not Recovered/Not Resolved]
  - Sense of oppression [Not Recovered/Not Resolved]
  - Sense of oppression [Recovered/Resolved]
